FAERS Safety Report 4328667-7 (Version None)
Quarter: 2004Q1

REPORT INFORMATION
  Report Type: 
  Country: None (occurrence: None)
  Receive Date: 20040329
  Receipt Date: 20040311
  Transmission Date: 20041129
  Serious: Yes (Hospitalization)
  Sender: FDA-Public Use
  Company Number: 601137

PATIENT
  Age: 53 Year
  Sex: Male

DRUGS (3)
  1. GAMMAGARD S/D [Suspect]
     Indication: MYASTHENIA GRAVIS
     Dosage: 50 GM; BIW; INTRAVENOUS
     Route: 042
     Dates: start: 20040130, end: 20040213
  2. NAPROSYN [Concomitant]
  3. LASIX [Concomitant]

REACTIONS (4)
  - DYSPNOEA [None]
  - HYPERHIDROSIS [None]
  - PULMONARY EMBOLISM [None]
  - SKIN DISORDER [None]
